FAERS Safety Report 7111790-1 (Version None)
Quarter: 2010Q4

REPORT INFORMATION
  Report Type: 
  Country: None (occurrence: None)
  Receive Date: 20101119
  Receipt Date: 20101013
  Transmission Date: 20110411
  Serious: Yes (Hospitalization)
  Sender: FDA-Public Use
  Company Number: JP-AMGEN-JPNSP2010000121

PATIENT

DRUGS (5)
  1. ENBREL [Suspect]
     Indication: RHEUMATOID ARTHRITIS
     Dosage: DOSE UNKNOWN
     Route: 058
     Dates: start: 20081201
  2. PREDNISOLONE [Suspect]
     Indication: RHEUMATOID ARTHRITIS
     Dosage: DOSE UNKNOWN
     Route: 048
     Dates: start: 20080401, end: 20081201
  3. PREDNISOLONE [Suspect]
     Dosage: 50 MG DAILY AND DECREASED GRADUALLY
     Route: 048
     Dates: start: 20081201, end: 20090301
  4. PREDNISOLONE [Suspect]
     Route: 048
     Dates: start: 20090301
  5. RHEUMATREX [Suspect]
     Indication: RHEUMATOID ARTHRITIS
     Dosage: DOSE UNKNOWN
     Route: 048
     Dates: start: 20080401

REACTIONS (4)
  - BRONCHOPULMONARY ASPERGILLOSIS [None]
  - INFLUENZA [None]
  - NOCARDIOSIS [None]
  - TUBERCULOSIS [None]
